FAERS Safety Report 15928994 (Version 6)
Quarter: 2019Q2

REPORT INFORMATION
  Report Type: Spontaneous
  Country: SK (occurrence: SK)
  Receive Date: 20190206
  Receipt Date: 20190404
  Transmission Date: 20190711
  Serious: Yes (Hospitalization, Other)
  Sender: FDA-Public Use
  Company Number: SK-MYLANLABS-2019M1010408

PATIENT
  Age: 58 Year
  Sex: Female

DRUGS (14)
  1. CIPROFLOXACIN. [Concomitant]
     Active Substance: CIPROFLOXACIN
     Indication: PRODUCT USED FOR UNKNOWN INDICATION
     Dosage: UNK
     Route: 065
     Dates: start: 201607
  2. PREDNISONE. [Suspect]
     Active Substance: PREDNISONE
     Dosage: 80 MILLIGRAM, QD (80 MILLIGRAM DAILY)
     Route: 065
     Dates: start: 201607
  3. PREDNISONE. [Suspect]
     Active Substance: PREDNISONE
     Dosage: 60 MILLIGRAM, QD
     Route: 065
  4. FLUCONAZOLE. [Concomitant]
     Active Substance: FLUCONAZOLE
     Indication: PROPHYLAXIS
     Dosage: UNK UNK, QD
     Route: 065
     Dates: start: 201607
  5. VALACICLOVIR [Concomitant]
     Active Substance: VALACYCLOVIR HYDROCHLORIDE
     Indication: PROPHYLAXIS
     Dosage: UNK UNK, QD
     Route: 065
     Dates: start: 201607
  6. PREDNISONE. [Suspect]
     Active Substance: PREDNISONE
     Indication: LYMPHADENITIS
     Dosage: 100 MILLIGRAM, QD (100 MILLIGRAM DAILY;)
     Route: 065
     Dates: start: 201605
  7. PREDNISONE. [Suspect]
     Active Substance: PREDNISONE
     Dosage: 30 MILLIGRAM, QD
     Route: 065
     Dates: start: 201612
  8. PREDNISONE. [Suspect]
     Active Substance: PREDNISONE
     Dosage: 100 MILLIGRAM, QD
     Route: 065
     Dates: start: 201609
  9. PREDNISONE. [Suspect]
     Active Substance: PREDNISONE
     Dosage: UNK, DECREASE OF PREDNISONE FROM THE DOSE OF 100 MG DAILY
  10. PREDNISONE. [Suspect]
     Active Substance: PREDNISONE
     Dosage: 100 MILLIGRAM
  11. PREDNISONE. [Suspect]
     Active Substance: PREDNISONE
     Dosage: 60 MILLIGRAM
     Route: 065
     Dates: start: 201605
  12. PREDNISONE. [Suspect]
     Active Substance: PREDNISONE
     Dosage: 5 MILLIGRAM, QD
     Route: 065
     Dates: start: 201612, end: 201701
  13. PREDNISONE. [Suspect]
     Active Substance: PREDNISONE
     Dosage: 1.5 MILLIGRAM/KILOGRAM AT TOTAL DOSE OF 100 MG DAILY SINCE THE END OF MAY-2016
     Route: 048
     Dates: start: 201605
  14. PREDNISONE. [Suspect]
     Active Substance: PREDNISONE
     Dosage: 6 MILLIGRAM, QD

REACTIONS (16)
  - Arthralgia [Unknown]
  - Vasculitis [Unknown]
  - Cushingoid [Unknown]
  - Gait disturbance [Unknown]
  - Cushing^s syndrome [Unknown]
  - Muscle atrophy [Unknown]
  - Pruritus [Unknown]
  - Oedema peripheral [Unknown]
  - Leishmaniasis [Unknown]
  - Cachexia [Unknown]
  - Rash [Unknown]
  - Decreased appetite [Unknown]
  - Oedema [Unknown]
  - Malnutrition [Unknown]
  - Skin lesion [Unknown]
  - Weight decreased [Unknown]

NARRATIVE: CASE EVENT DATE: 201611
